FAERS Safety Report 14501687 (Version 1)
Quarter: 2018Q1

REPORT INFORMATION
  Report Type: Spontaneous
  Country: US (occurrence: US)
  Receive Date: 20180206
  Receipt Date: 20180206
  Transmission Date: 20180509
  Serious: Yes (Other)
  Sender: FDA-Public Use
  Company Number: None

PATIENT
  Age: 25 Year
  Sex: Female
  Weight: 78.3 kg

DRUGS (2)
  1. NOTRIPTYLINE HCL [Suspect]
     Active Substance: NORTRIPTYLINE HYDROCHLORIDE
     Indication: TENSION HEADACHE
     Dosage: ?          QUANTITY:1 CAPSULE(S);?
     Route: 048
     Dates: start: 20180201, end: 20180202
  2. MELOXCIN [Concomitant]

REACTIONS (2)
  - Fungal infection [None]
  - Abdominal pain [None]

NARRATIVE: CASE EVENT DATE: 20180202
